FAERS Safety Report 13139089 (Version 1)
Quarter: 2017Q1

REPORT INFORMATION
  Report Type: Report from Study
  Country: BR (occurrence: BR)
  Receive Date: 20170123
  Receipt Date: 20170123
  Transmission Date: 20170428
  Serious: Yes (Other)
  Sender: FDA-Public Use
  Company Number: PHHY2017BR007098

PATIENT
  Age: 61 Year
  Sex: Male
  Weight: 58 kg

DRUGS (1)
  1. CODATEN [Suspect]
     Active Substance: CODEINE PHOSPHATE\DICLOFENAC SODIUM
     Indication: SPINAL PAIN
     Dosage: 50 MG, PRN
     Route: 048

REACTIONS (4)
  - Intervertebral disc protrusion [Unknown]
  - Drug dependence [Unknown]
  - Head discomfort [Unknown]
  - Pain [Unknown]
